FAERS Safety Report 23346363 (Version 2)
Quarter: 2024Q4

REPORT INFORMATION
  Report Type: Spontaneous
  Country: CA (occurrence: CA)
  Receive Date: 20231228
  Receipt Date: 20241015
  Transmission Date: 20250115
  Serious: Yes (Hospitalization, Other)
  Sender: B BRAUN
  Company Number: CA-B.Braun Medical Inc.-2149876

PATIENT
  Age: 71 Year
  Sex: Female
  Weight: 69 kg

DRUGS (61)
  1. ACETAMINOPHEN [Suspect]
     Active Substance: ACETAMINOPHEN
  2. METRONIDAZOLE [Suspect]
     Active Substance: METRONIDAZOLE
  3. VALSARTAN [Concomitant]
     Active Substance: VALSARTAN
  4. METOCLOPRAMIDE HYDROCHLORIDE [Concomitant]
     Active Substance: METOCLOPRAMIDE HYDROCHLORIDE
  5. LOPERAMIDE [Concomitant]
     Active Substance: LOPERAMIDE
  6. CALCIUM LACTATE\CALCIUM PHOSPHATE\ERGOCALCIFEROL [Concomitant]
     Active Substance: CALCIUM LACTATE\CALCIUM PHOSPHATE\ERGOCALCIFEROL
  7. ZINC OXIDE [Suspect]
     Active Substance: ZINC OXIDE
  8. ZEAXANTHIN [Suspect]
     Active Substance: ZEAXANTHIN
  9. XANTOFYL PALMITATE [Suspect]
     Active Substance: XANTOFYL PALMITATE
  10. VITAMIN D3 [Suspect]
     Active Substance: CHOLECALCIFEROL
  11. TRIAMCINOLONE ACETONIDE [Suspect]
     Active Substance: TRIAMCINOLONE ACETONIDE
  12. CARBOXYMETHYLCELLULOSE SODIUM [Suspect]
     Active Substance: CARBOXYMETHYLCELLULOSE SODIUM
  13. PULMICORT TURBUHALER [Suspect]
     Active Substance: BUDESONIDE
  14. PREGABALIN [Suspect]
     Active Substance: PREGABALIN
  15. PANTOPRAZOLE SODIUM [Suspect]
     Active Substance: PANTOPRAZOLE SODIUM
  16. NICOTINE POLACRILEX [Suspect]
     Active Substance: NICOTINE
  17. NICODERM CQ [Suspect]
     Active Substance: NICOTINE
  18. MUPIROCIN [Suspect]
     Active Substance: MUPIROCIN
  19. MORPHINE SULFATE [Suspect]
     Active Substance: MORPHINE SULFATE
  20. MIDAZOLAM HYDROCHLORIDE [Suspect]
     Active Substance: MIDAZOLAM HYDROCHLORIDE
  21. MESALAMINE [Suspect]
     Active Substance: MESALAMINE
  22. LOPERAMIDE HYDROCHLORIDE [Suspect]
     Active Substance: LOPERAMIDE HYDROCHLORIDE
  23. ISONIAZID\PYRIDOXINE\SULFAMETHOXAZOLE\TRIMETHOPRIM [Suspect]
     Active Substance: ISONIAZID\PYRIDOXINE\SULFAMETHOXAZOLE\TRIMETHOPRIM
  24. INFLIXIMAB [Suspect]
     Active Substance: INFLIXIMAB
  25. GRAMICIDIN\NEOMYCIN SULFATE\POLYMYXIN B SULFATE [Suspect]
     Active Substance: GRAMICIDIN\NEOMYCIN SULFATE\POLYMYXIN B SULFATE
  26. GLYCERIN [Suspect]
     Active Substance: GLYCERIN
  27. FLUTICASONE PROPIONATE [Suspect]
     Active Substance: FLUTICASONE PROPIONATE
  28. FLUTICASONE FUROATE [Suspect]
     Active Substance: FLUTICASONE FUROATE
  29. ERTAPENEM SODIUM [Suspect]
     Active Substance: ERTAPENEM SODIUM
  30. ENTYVIO [Suspect]
     Active Substance: VEDOLIZUMAB
  31. ENTOCORT [Suspect]
     Active Substance: BUDESONIDE
  32. DESONIDE [Suspect]
     Active Substance: DESONIDE
  33. .ALPHA.-TOCOPHEROL, D- [Suspect]
     Active Substance: .ALPHA.-TOCOPHEROL, D-
  34. CUPRIC OXIDE [Suspect]
     Active Substance: CUPRIC OXIDE
  35. CLOTRIMAZOLE [Suspect]
     Active Substance: CLOTRIMAZOLE
  36. CETIRIZINE HYDROCHLORIDE [Suspect]
     Active Substance: CETIRIZINE HYDROCHLORIDE
  37. BUDESONIDE [Suspect]
     Active Substance: BUDESONIDE
  38. BIAXIN [Suspect]
     Active Substance: CLARITHROMYCIN
  39. BETAMETHASONE VALERATE [Suspect]
     Active Substance: BETAMETHASONE VALERATE
  40. BETAMETHASONE [Suspect]
     Active Substance: BETAMETHASONE
  41. AZITHROMYCIN DIHYDRATE [Suspect]
     Active Substance: AZITHROMYCIN DIHYDRATE
  42. ATROPINE\DIPHENOXYLATE HYDROCHLORIDE [Suspect]
     Active Substance: ATROPINE\DIPHENOXYLATE HYDROCHLORIDE
  43. AMOXICILLIN TRIHYDRATE [Suspect]
     Active Substance: AMOXICILLIN
  44. ADALIMUMAB [Suspect]
     Active Substance: ADALIMUMAB
  45. SODIUM CHLORIDE [Suspect]
     Active Substance: SODIUM CHLORIDE
  46. MAGNESIUM SULFATE [Suspect]
     Active Substance: MAGNESIUM SULFATE
  47. SULFAMETHOXAZOLE\TRIMETHOPRIM [Suspect]
     Active Substance: SULFAMETHOXAZOLE\TRIMETHOPRIM
  48. PREDNISONE [Suspect]
     Active Substance: PREDNISONE
  49. AZITHROMYCIN ANHYDROUS [Suspect]
     Active Substance: AZITHROMYCIN ANHYDROUS
  50. NICOTINE [Suspect]
     Active Substance: NICOTINE
  51. NADOLOL [Suspect]
     Active Substance: NADOLOL
  52. HYDROMORPHONE HYDROCHLORIDE [Suspect]
     Active Substance: HYDROMORPHONE HYDROCHLORIDE
  53. DIPHENHYDRAMINE [Suspect]
     Active Substance: DIPHENHYDRAMINE
  54. CLARITHROMYCIN [Suspect]
     Active Substance: CLARITHROMYCIN
  55. CALCIUM CARBONATE\CHOLECALCIFEROL [Suspect]
     Active Substance: CALCIUM CARBONATE\CHOLECALCIFEROL
  56. CALCIUM CARBONATE\CALCIUM LACTATE GLUCONATE [Suspect]
     Active Substance: CALCIUM CARBONATE\CALCIUM LACTATE GLUCONATE
  57. BISACODYL [Suspect]
     Active Substance: BISACODYL
  58. ATORVASTATIN CALCIUM [Suspect]
     Active Substance: ATORVASTATIN CALCIUM
  59. DIETARY SUPPLEMENT [Suspect]
     Active Substance: DIETARY SUPPLEMENT
  60. ALPRAZOLAM [Suspect]
     Active Substance: ALPRAZOLAM
  61. POTASSIUM CHLORIDE [Suspect]
     Active Substance: POTASSIUM CHLORIDE

REACTIONS (29)
  - Abdominal pain [Not Recovered/Not Resolved]
  - Drug ineffective for unapproved indication [Not Recovered/Not Resolved]
  - Macular degeneration [Not Recovered/Not Resolved]
  - Weight decreased [Not Recovered/Not Resolved]
  - Vaginal flatulence [Not Recovered/Not Resolved]
  - Vaginal discharge [Not Recovered/Not Resolved]
  - Therapeutic product effect incomplete [Not Recovered/Not Resolved]
  - Rectal haemorrhage [Not Recovered/Not Resolved]
  - Radiculopathy [Not Recovered/Not Resolved]
  - Pyrexia [Not Recovered/Not Resolved]
  - Proctitis [Not Recovered/Not Resolved]
  - Procedural pain [Not Recovered/Not Resolved]
  - Paraesthesia oral [Not Recovered/Not Resolved]
  - Pain [Not Recovered/Not Resolved]
  - Oral candidiasis [Not Recovered/Not Resolved]
  - Nausea [Not Recovered/Not Resolved]
  - Malaise [Not Recovered/Not Resolved]
  - Infusion related reaction [Not Recovered/Not Resolved]
  - Headache [Not Recovered/Not Resolved]
  - Haematochezia [Not Recovered/Not Resolved]
  - Frequent bowel movements [Not Recovered/Not Resolved]
  - Female genital tract fistula [Not Recovered/Not Resolved]
  - Erythema [Not Recovered/Not Resolved]
  - Dyspepsia [Not Recovered/Not Resolved]
  - Constipation [Not Recovered/Not Resolved]
  - Colitis ulcerative [Not Recovered/Not Resolved]
  - Colitis [Not Recovered/Not Resolved]
  - Chronic sinusitis [Not Recovered/Not Resolved]
  - Anaemia [Not Recovered/Not Resolved]
